FAERS Safety Report 10219071 (Version 2)
Quarter: 2014Q2

REPORT INFORMATION
  Report Type: Spontaneous
  Country: US (occurrence: US)
  Receive Date: 20140605
  Receipt Date: 20140617
  Transmission Date: 20141212
  Serious: Yes (Life-Threatening, Hospitalization)
  Sender: FDA-Public Use
  Company Number: US-CELGENEUS-163-21880-14060037

PATIENT
  Sex: Female

DRUGS (3)
  1. REVLIMID [Suspect]
     Indication: PLASMA CELL MYELOMA
     Dosage: 10 MILLIGRAM
     Route: 048
     Dates: start: 20140512, end: 20140530
  2. NORCO [Concomitant]
     Indication: PAIN
     Dosage: 10 MILLIGRAM
     Route: 065
  3. ASPIRIN [Concomitant]
     Indication: ANTICOAGULANT THERAPY
     Dosage: 81 MILLIGRAM
     Route: 065

REACTIONS (2)
  - Pelvic fracture [Unknown]
  - Peripheral swelling [Unknown]
